FAERS Safety Report 8984953 (Version 1)
Quarter: 2012Q4

REPORT INFORMATION
  Report Type: 
  Country: MX (occurrence: MX)
  Receive Date: 20121226
  Receipt Date: 20121226
  Transmission Date: 20130627
  Serious: Yes (Other)
  Sender: FDA-Public Use
  Company Number: PHHY2012MX119263

PATIENT
  Age: 85 Year
  Sex: Female

DRUGS (1)
  1. STALEVO [Suspect]
     Indication: PARKINSON^S DISEASE
     Dosage: 200/100/25 mg film
     Route: 048
     Dates: start: 201210

REACTIONS (1)
  - Cataract [Not Recovered/Not Resolved]
